FAERS Safety Report 17238163 (Version 1)
Quarter: 2020Q1

REPORT INFORMATION
  Report Type: Spontaneous
  Country: US (occurrence: US)
  Receive Date: 20200106
  Receipt Date: 20200106
  Transmission Date: 20200409
  Serious: No
  Sender: FDA-Public Use
  Company Number: US-PACIRA-201900354

PATIENT

DRUGS (5)
  1. EPINEPHRINE. [Suspect]
     Active Substance: EPINEPHRINE
     Indication: LIPOSUCTION
     Dosage: 30CC OF 1% LIDOCAINE AND ONE AMPULE OF EPINEPHRINE IN ONE LITER OF SALINE
     Route: 065
  2. BUPIVACAINE. [Suspect]
     Active Substance: BUPIVACAINE
     Indication: ABDOMINOPLASTY
     Dosage: 30CC OF 1/4% WITH 266 MG OF EXPAREL
     Route: 065
  3. SALINE [Suspect]
     Active Substance: SODIUM CHLORIDE
     Indication: LIPOSUCTION
     Dosage: 30CC OF 1% LIDOCAINE AND ONE AMPULE OF EPINEPHRINE IN ONE LITER OF SALINE
     Route: 065
  4. EXPAREL [Suspect]
     Active Substance: BUPIVACAINE
     Indication: ABDOMINOPLASTY
     Dosage: 266 MG WITH 30 CC OF 1/4 % BUPIVACAINE
  5. LIDOCAINE. [Suspect]
     Active Substance: LIDOCAINE
     Indication: LIPOSUCTION
     Dosage: 30CC AND ONE AMPULE OF EPINEPHRINE IN ONE LITER OF SALINE
     Route: 065

REACTIONS (1)
  - Inappropriate schedule of product administration [Unknown]
